FAERS Safety Report 8069460 (Version 12)
Quarter: 2013Q1

REPORT INFORMATION
  Report Type: Spontaneous
  Country: US (occurrence: US)
  Receive Date: 20110804
  Receipt Date: 20130211
  Transmission Date: 20140127
  Serious: Yes (Hospitalization, Disabling, Other)
  Sender: FDA-Public Use
  Company Number: US-009507513-1108USA00185

PATIENT
  Sex: Female
  Weight: 50.52 kg

DRUGS (4)
  1. FOSAMAX [Suspect]
     Indication: OSTEOPOROSIS
     Dosage: 10 MG, QD
     Route: 048
     Dates: start: 1995
  2. FOSAMAX [Suspect]
     Dosage: 70 MG, QD
     Route: 048
     Dates: start: 20080919, end: 20081223
  3. BONIVA [Suspect]
     Indication: OSTEOPOROSIS
     Dosage: 150 MG, UNK
     Route: 048
     Dates: start: 200901, end: 20091215
  4. MK-9278 [Concomitant]

REACTIONS (44)
  - Open reduction of fracture [Not Recovered/Not Resolved]
  - Pathological fracture [Recovering/Resolving]
  - Osteoporosis [Not Recovered/Not Resolved]
  - Fall [Not Recovered/Not Resolved]
  - Stress fracture [Not Recovered/Not Resolved]
  - Low turnover osteopathy [Not Recovered/Not Resolved]
  - Depression [Not Recovered/Not Resolved]
  - Adverse event [Unknown]
  - Hiatus hernia [Unknown]
  - Pharyngitis [Unknown]
  - Chronic sinusitis [Unknown]
  - Dyspepsia [Unknown]
  - Hyperlipidaemia [Unknown]
  - Gastric disorder [Unknown]
  - Fatigue [Unknown]
  - Acute stress disorder [Unknown]
  - Stress [Unknown]
  - Depression [Unknown]
  - Pharyngitis [Unknown]
  - Herpes zoster [Recovering/Resolving]
  - Migraine [Unknown]
  - Seborrhoeic keratosis [Unknown]
  - Acute sinusitis [Unknown]
  - Acute sinusitis [Recovered/Resolved]
  - Carpal tunnel syndrome [Unknown]
  - Spondylolisthesis [Unknown]
  - Fracture nonunion [Unknown]
  - Device failure [Unknown]
  - Fracture delayed union [Unknown]
  - Intervertebral disc degeneration [Unknown]
  - Sciatica [Unknown]
  - Osteoarthritis [Unknown]
  - Musculoskeletal chest pain [Unknown]
  - Chest pain [Unknown]
  - Road traffic accident [Unknown]
  - Spleen disorder [Unknown]
  - Spinal fracture [Unknown]
  - Joint dislocation [Unknown]
  - Musculoskeletal pain [Unknown]
  - Intestinal obstruction [Unknown]
  - Osteopenia [Unknown]
  - Hypertension [Unknown]
  - Arthritis [Unknown]
  - Hyperthyroidism [Unknown]
